FAERS Safety Report 16226245 (Version 2)
Quarter: 2019Q2

REPORT INFORMATION
  Report Type: Spontaneous
  Country: DE (occurrence: DE)
  Receive Date: 20190423
  Receipt Date: 20190504
  Transmission Date: 20190711
  Serious: Yes (Other)
  Sender: FDA-Public Use
  Company Number: DE-AUROBINDO-AUR-APL-2019-020984

PATIENT

DRUGS (5)
  1. NOVAMINSULFON LICHTENSTEIN [Concomitant]
     Active Substance: METAMIZOLE SODIUM
     Indication: PAIN
     Dosage: UNK
     Route: 065
     Dates: start: 2017
  2. SALBUHEXAL [Concomitant]
     Active Substance: ALBUTEROL
     Indication: DYSPNOEA
     Dosage: IF NECESSARY
     Route: 065
     Dates: start: 2015
  3. RANITIDIN RATIOPHARM [Suspect]
     Active Substance: RANITIDINE HYDROCHLORIDE
     Indication: ABDOMINAL DISCOMFORT
     Dosage: 300 MILLIGRAM, DAILY (0-0-1 UNTIL THE END OF OCTOBER)
     Route: 065
     Dates: start: 20180926, end: 201810
  4. PANTOPRAZOLE [Concomitant]
     Active Substance: PANTOPRAZOLE
     Indication: ABDOMINAL DISCOMFORT
     Dosage: 40 MILLIGRAM, DAILY (1-0-0 UNTIL THE END OF OCTOBER)
     Route: 065
     Dates: start: 20180911, end: 201810
  5. MIRTAZAPINE AUROBINDO FILMCOATED TABLETS 15MG [Suspect]
     Active Substance: MIRTAZAPINE
     Indication: SLEEP DISORDER
     Dosage: 15 MILLIGRAM, DAILY (0-0-1)
     Route: 065
     Dates: start: 2015

REACTIONS (4)
  - Pulse abnormal [Recovered/Resolved]
  - Arrhythmia [Recovered/Resolved]
  - Dyspnoea [Recovered/Resolved]
  - Nightmare [Recovered/Resolved]

NARRATIVE: CASE EVENT DATE: 201810
